FAERS Safety Report 11742780 (Version 1)
Quarter: 2015Q4

REPORT INFORMATION
  Report Type: Spontaneous
  Country: US (occurrence: US)
  Receive Date: 20151116
  Receipt Date: 20151116
  Transmission Date: 20160304
  Serious: No
  Sender: FDA-Public Use
  Company Number: US-UPSHER-SMITH LABORATORIES, INC.-14003719

PATIENT
  Age: 91 Year
  Sex: Male

DRUGS (11)
  1. JANTOVEN [Suspect]
     Active Substance: WARFARIN SODIUM
     Indication: ATRIAL FIBRILLATION
     Dosage: UNK, PER INR RESULTS
     Route: 048
     Dates: start: 2010
  2. LUCENTIS [Concomitant]
     Active Substance: RANIBIZUMAB
     Indication: MACULAR DEGENERATION
     Dosage: UNK, UNK
     Route: 047
     Dates: end: 201407
  3. BISOPROLOL FUMARATE. [Concomitant]
     Active Substance: BISOPROLOL FUMARATE
     Indication: HYPERTENSION
     Dosage: 0.5 TABLET(S), QD
     Route: 048
  4. SIMVASTATIN. [Concomitant]
     Active Substance: SIMVASTATIN
     Indication: BLOOD CHOLESTEROL INCREASED
     Dosage: 1 TABLET(S), QD
     Route: 048
  5. JANTOVEN [Suspect]
     Active Substance: WARFARIN SODIUM
     Indication: CEREBROVASCULAR ACCIDENT PROPHYLAXIS
  6. AVASTIN [Concomitant]
     Active Substance: BEVACIZUMAB
     Indication: MACULAR DEGENERATION
     Dosage: UNK, UNK
     Route: 047
     Dates: start: 201407
  7. AMLODIPINE BESYLATE. [Concomitant]
     Active Substance: AMLODIPINE BESYLATE
     Indication: HYPERTENSION
     Dosage: 2.5 MG, QD
     Route: 048
  8. VITAMIN B12 [Concomitant]
     Active Substance: CYANOCOBALAMIN
     Indication: PRODUCT USED FOR UNKNOWN INDICATION
     Dosage: UNK, UNK
  9. TAMSULOSIN HCL [Concomitant]
     Active Substance: TAMSULOSIN
     Indication: ANEURYSM
     Dosage: UNK, UNK
     Route: 048
  10. HYDROCHLOROTHIAZIDE. [Concomitant]
     Active Substance: HYDROCHLOROTHIAZIDE
     Indication: HYPERTENSION
     Dosage: 0.5 TABLET(S), QD
     Route: 048
  11. LISINOPRIL. [Concomitant]
     Active Substance: LISINOPRIL
     Indication: HYPERTENSION
     Dosage: UNK, UNK
     Route: 048

REACTIONS (3)
  - Drug prescribing error [Recovered/Resolved]
  - Contusion [Recovered/Resolved]
  - International normalised ratio increased [Recovered/Resolved]

NARRATIVE: CASE EVENT DATE: 201406
